FAERS Safety Report 5512512-8 (Version None)
Quarter: 2007Q4

REPORT INFORMATION
  Report Type: 
  Country: None (occurrence: None)
  Receive Date: 20071108
  Receipt Date: 20071029
  Transmission Date: 20080405
  Serious: Yes (Other)
  Sender: FDA-Public Use
  Company Number: 020053

PATIENT
  Sex: Male

DRUGS (1)
  1. TRAZODONE HCL [Suspect]
     Indication: SLEEP DISORDER
     Dosage: 1 TO 4 TABLET(S), HS, ORAL
     Route: 048
     Dates: start: 20071018, end: 20071019

REACTIONS (5)
  - CHOKING [None]
  - DRY MOUTH [None]
  - FALL [None]
  - LOSS OF CONSCIOUSNESS [None]
  - TREMOR [None]
